APPROVED DRUG PRODUCT: NAPROXEN
Active Ingredient: NAPROXEN
Strength: 250MG
Dosage Form/Route: TABLET;ORAL
Application: A074129 | Product #001
Applicant: TEVA PHARMACEUTICALS USA INC
Approved: Dec 21, 1993 | RLD: No | RS: No | Type: DISCN